FAERS Safety Report 16784344 (Version 1)
Quarter: 2019Q3

REPORT INFORMATION
  Report Type: Spontaneous
  Country: US (occurrence: US)
  Receive Date: 20190909
  Receipt Date: 20190909
  Transmission Date: 20191005
  Serious: Yes (Hospitalization)
  Sender: FDA-Public Use
  Company Number: US-HORIZON-RAV-0278-2019

PATIENT
  Age: 18 Year
  Sex: Female

DRUGS (1)
  1. RAVICTI [Suspect]
     Active Substance: GLYCEROL PHENYLBUTYRATE
     Indication: UREA CYCLE DISORDER
     Dosage: 5 ML THREE TIMES A DAY ORAL
     Route: 048
     Dates: start: 201304

REACTIONS (3)
  - Ammonia increased [Unknown]
  - Therapy cessation [Unknown]
  - Product distribution issue [Unknown]
